FAERS Safety Report 25633625 (Version 2)
Quarter: 2025Q3

REPORT INFORMATION
  Report Type: Spontaneous
  Country: JP (occurrence: JP)
  Receive Date: 20250801
  Receipt Date: 20250806
  Transmission Date: 20251021
  Serious: Yes (Life-Threatening, Hospitalization, Other)
  Sender: PFIZER
  Company Number: JP-MLMSERVICE-20250721-PI585684-00101-1

PATIENT
  Age: 52 Year
  Sex: Female

DRUGS (4)
  1. PACLITAXEL [Suspect]
     Active Substance: PACLITAXEL
     Indication: Squamous cell carcinoma of the cervix
  2. PACLITAXEL [Suspect]
     Active Substance: PACLITAXEL
     Indication: Cervix carcinoma stage III
  3. CISPLATIN [Suspect]
     Active Substance: CISPLATIN
     Indication: Squamous cell carcinoma of the cervix
  4. CISPLATIN [Suspect]
     Active Substance: CISPLATIN
     Indication: Cervix carcinoma stage III

REACTIONS (2)
  - Ureteric fistula [Recovered/Resolved]
  - Off label use [Unknown]
